FAERS Safety Report 13247383 (Version 2)
Quarter: 2017Q1

REPORT INFORMATION
  Report Type: Spontaneous
  Country: US (occurrence: US)
  Receive Date: 20170217
  Receipt Date: 20170320
  Transmission Date: 20170428
  Serious: Yes (Other)
  Sender: FDA-Public Use
  Company Number: US-PFIZER INC-2017072662

PATIENT
  Age: 55 Year
  Sex: Female
  Weight: 61.23 kg

DRUGS (6)
  1. ELAVIL [Concomitant]
     Active Substance: AMITRIPTYLINE HYDROCHLORIDE
     Indication: SLEEP DISORDER
     Dosage: UNK, AS NEEDED (25-50 MG PRN AT BED TIME)
     Dates: start: 20150424
  2. LYRICA [Suspect]
     Active Substance: PREGABALIN
     Dosage: 75 MG, 3X/DAY
  3. LYRICA [Suspect]
     Active Substance: PREGABALIN
     Dosage: 200 MG, 2X/DAY
     Dates: end: 201612
  4. KLONOPIN [Concomitant]
     Active Substance: CLONAZEPAM
     Indication: ANXIETY
     Dosage: 0.5 MG, AS NEEDED (BID PRN)
     Dates: start: 20140605
  5. LYRICA [Suspect]
     Active Substance: PREGABALIN
     Indication: FIBROMYALGIA
     Dosage: 75 MG, 2X/DAY
     Dates: start: 201505
  6. BUSPAR [Concomitant]
     Active Substance: BUSPIRONE HYDROCHLORIDE
     Indication: ANXIETY
     Dosage: 30 MG, 2X/DAY
     Dates: start: 20140605

REACTIONS (11)
  - Insomnia [Unknown]
  - Drug ineffective [Unknown]
  - Migraine [Unknown]
  - Hypersensitivity [Unknown]
  - Limb injury [Unknown]
  - Pneumonia [Unknown]
  - Pain [Unknown]
  - Fibromyalgia [Unknown]
  - Condition aggravated [Unknown]
  - Fatigue [Unknown]
  - Impaired work ability [Unknown]

NARRATIVE: CASE EVENT DATE: 201701
